FAERS Safety Report 12277341 (Version 1)
Quarter: 2016Q2

REPORT INFORMATION
  Report Type: Report from Study
  Country: AT (occurrence: AT)
  Receive Date: 20160418
  Receipt Date: 20160418
  Transmission Date: 20160815
  Serious: Yes (Death, Life-Threatening, Hospitalization)
  Sender: FDA-Public Use
  Company Number: PHHO2010AT16177

PATIENT
  Age: 73 Year
  Sex: Female
  Weight: 63.5 kg

DRUGS (3)
  1. EBETREXAT [Suspect]
     Active Substance: METHOTREXATE SODIUM
     Indication: POLYARTHRITIS
     Dosage: 20 MG, QW
     Route: 048
     Dates: start: 2004
  2. FLUCLOXACILLIN [Suspect]
     Active Substance: FLUCLOXACILLIN
     Indication: CELLULITIS
     Dosage: UNK
     Route: 042
     Dates: start: 20101014, end: 20101016
  3. SSPS [Suspect]
     Active Substance: UNSPECIFIED INGREDIENT
     Indication: CELLULITIS
     Dosage: UNK
     Route: 042
     Dates: start: 20101014, end: 20101016

REACTIONS (5)
  - Cardiac failure [Fatal]
  - Hypotension [Fatal]
  - Multiple organ dysfunction syndrome [Fatal]
  - Pancytopenia [Fatal]
  - Renal impairment [Fatal]

NARRATIVE: CASE EVENT DATE: 20101016
